FAERS Safety Report 6828936-2 (Version None)
Quarter: 2010Q3

REPORT INFORMATION
  Report Type: 
  Country: None (occurrence: None)
  Receive Date: 20100709
  Receipt Date: 20070224
  Transmission Date: 20110219
  Serious: No
  Sender: FDA-Public Use
  Company Number: US-PFIZER INC-2007014890

PATIENT
  Sex: Female
  Weight: 105.23 kg

DRUGS (10)
  1. CHANTIX [Suspect]
     Indication: SMOKING CESSATION THERAPY
     Dates: start: 20070101
  2. HYPNOTICS AND SEDATIVES [Concomitant]
     Indication: SLEEP DISORDER
     Dates: start: 20040101
  3. WARFARIN [Concomitant]
     Indication: THROMBOSIS
     Dates: start: 20061101
  4. POTASSIUM [Concomitant]
  5. METOCLOPRAMIDE [Concomitant]
     Indication: GASTRIC ULCER
     Dates: start: 20050101
  6. NIACIN [Concomitant]
     Dates: start: 20050101
  7. MUCINEX [Concomitant]
     Indication: THROAT IRRITATION
     Dates: start: 20060101
  8. ZOCOR [Concomitant]
     Indication: BLOOD CHOLESTEROL INCREASED
     Dates: start: 20060101
  9. ENALAPRIL [Concomitant]
     Indication: HYPERTENSION
     Dates: start: 20060801
  10. LASIX [Concomitant]

REACTIONS (3)
  - ABNORMAL DREAMS [None]
  - DRUG INEFFECTIVE [None]
  - SLEEP TALKING [None]
